FAERS Safety Report 5431987-6 (Version None)
Quarter: 2007Q3

REPORT INFORMATION
  Report Type: 
  Country: None (occurrence: None)
  Receive Date: 20070731
  Receipt Date: 20070608
  Transmission Date: 20080115
  Serious: No
  Sender: FDA-Public Use
  Company Number: US200706002236

PATIENT
  Age: 33 Year
  Sex: Male

DRUGS (2)
  1. BYETTA [Suspect]
  2. EXENATIDE PEN (EXENATIDE PEN) [Concomitant]

REACTIONS (4)
  - INJECTION SITE PAIN [None]
  - INJECTION SITE URTICARIA [None]
  - NAUSEA [None]
  - STOMACH DISCOMFORT [None]
